FAERS Safety Report 5242199-3 (Version None)
Quarter: 2007Q1

REPORT INFORMATION
  Report Type: 
  Country: None (occurrence: None)
  Receive Date: 20070220
  Receipt Date: 20070214
  Transmission Date: 20070707
  Serious: Yes (Hospitalization)
  Sender: FDA-Public Use
  Company Number: IN-ALLERGAN-0701578US

PATIENT
  Sex: Female

DRUGS (4)
  1. COMBIGAN [Suspect]
     Indication: INTRAOCULAR PRESSURE INCREASED
     Route: 047
     Dates: start: 20070124, end: 20070124
  2. ATENOLOL [Concomitant]
     Indication: HYPERTENSION
  3. CHLOROTHIAZIDE [Concomitant]
     Indication: HYPERTENSION
  4. TIANEPTINE [Concomitant]

REACTIONS (1)
  - HYPOTENSION [None]
